FAERS Safety Report 8881969 (Version 1)
Quarter: 2012Q4

REPORT INFORMATION
  Report Type: 
  Country: GB (occurrence: GB)
  Receive Date: 20121101
  Receipt Date: 20121101
  Transmission Date: 20130627
  Serious: Yes (Disabling, Other)
  Sender: FDA-Public Use
  Company Number: PHHY2012GB097130

PATIENT
  Age: 33 Year
  Sex: Male

DRUGS (6)
  1. LAMOTRIGINE [Suspect]
     Dosage: 100 mg, BID
     Dates: start: 20120606
  2. EPILIM [Interacting]
     Dosage: 500 mg, BID
     Dates: start: 20120430
  3. CHAMPIX [Interacting]
     Indication: SMOKING CESSATION THERAPY
     Dosage: Standard escalating course (0.5 and 1mg)
     Dates: start: 20120914, end: 20121015
  4. MIDAZOLAM [Concomitant]
     Dates: start: 20120723, end: 20120724
  5. ZOPICLONE [Concomitant]
     Dates: start: 20120903, end: 20120917
  6. CODEINE PHOSPHATE [Concomitant]
     Dates: start: 20121015

REACTIONS (3)
  - Injury [Unknown]
  - Grand mal convulsion [Recovering/Resolving]
  - Drug interaction [Unknown]
